FAERS Safety Report 6168099-2 (Version None)
Quarter: 2009Q2

REPORT INFORMATION
  Report Type: 
  Country: None (occurrence: None)
  Receive Date: 20090423
  Receipt Date: 20090423
  Transmission Date: 20091009
  Serious: No
  Sender: FDA-Public Use
  Company Number: None

PATIENT
  Age: 64 Year
  Sex: Male
  Weight: 79.8331 kg

DRUGS (1)
  1. ZINC COLD REMEDY QUICK DISSOLVE TABS TARGET [Suspect]
     Indication: NASOPHARYNGITIS
     Dosage: 1 Q 3 HOURS PO
     Route: 048
     Dates: start: 20090418, end: 20090422

REACTIONS (2)
  - AGITATION [None]
  - CONFUSIONAL STATE [None]
